FAERS Safety Report 20425202 (Version 1)
Quarter: 2022Q1

REPORT INFORMATION
  Report Type: Spontaneous
  Country: CH (occurrence: CH)
  Receive Date: 20220204
  Receipt Date: 20220204
  Transmission Date: 20220423
  Serious: No
  Sender: FDA-Public Use
  Company Number: CH-EXELIXIS-CABO-21038280

PATIENT
  Sex: Female

DRUGS (12)
  1. CABOMETYX [Suspect]
     Active Substance: CABOZANTINIB S-MALATE
     Indication: Metastatic renal cell carcinoma
     Dosage: 40 MG
     Dates: start: 20201204, end: 20210105
  2. OMEPRAX [Concomitant]
  3. METOPROLOL SUCCINATE [Concomitant]
     Active Substance: METOPROLOL SUCCINATE
  4. CALCIUM\CHOLECALCIFEROL [Concomitant]
     Active Substance: CALCIUM\CHOLECALCIFEROL
  5. PERENTEROL [Concomitant]
     Active Substance: SACCHAROMYCES CEREVISIAE
  6. VITAMINS [Concomitant]
     Active Substance: VITAMINS
  7. ELIQUIS [Concomitant]
     Active Substance: APIXABAN
  8. IMODIUM [Concomitant]
     Active Substance: LOPERAMIDE HYDROCHLORIDE
  9. CALCIUM SULFATE\HERBALS [Concomitant]
     Active Substance: CALCIUM SULFATE\HERBALS
  10. Daflon [Concomitant]
  11. ACETAMINOPHEN [Concomitant]
     Active Substance: ACETAMINOPHEN
  12. METAMIZOLE [Concomitant]
     Active Substance: METAMIZOLE

REACTIONS (6)
  - Sleep deficit [Unknown]
  - Pain [Unknown]
  - Impaired healing [Recovering/Resolving]
  - Vomiting [Unknown]
  - Fatigue [Unknown]
  - Polyneuropathy [Unknown]

NARRATIVE: CASE EVENT DATE: 20210301
